FAERS Safety Report 4667255-X (Version None)
Quarter: 2005Q2

REPORT INFORMATION
  Report Type: 
  Country: None (occurrence: None)
  Receive Date: 20050520
  Receipt Date: 20040825
  Transmission Date: 20051028
  Serious: Yes (Other)
  Sender: FDA-Public Use
  Company Number: PHEH2004US09302

PATIENT
  Age: 52 Year
  Sex: Female

DRUGS (7)
  1. THALIDOMID [Concomitant]
  2. DEXAMETHASONE [Concomitant]
  3. MAXZIDE [Concomitant]
  4. M.V.I. [Concomitant]
  5. CALCIUM COMPOUNDS [Concomitant]
  6. IRON PREPARATIONS [Concomitant]
  7. ZOMETA [Suspect]
     Indication: MULTIPLE MYELOMA
     Dosage: 4 MG, QMO
     Route: 042
     Dates: start: 20010301

REACTIONS (7)
  - ASEPTIC NECROSIS BONE [None]
  - BONE DEBRIDEMENT [None]
  - IMPAIRED HEALING [None]
  - OSTEONECROSIS [None]
  - SINUS CONGESTION [None]
  - TOOTH EXTRACTION [None]
  - TOOTHACHE [None]
